FAERS Safety Report 9467790 (Version 1)
Quarter: 2013Q3

REPORT INFORMATION
  Report Type: Spontaneous
  Country: US (occurrence: None)
  Receive Date: 20130819
  Receipt Date: 20130819
  Transmission Date: 20140515
  Serious: Yes (Life-Threatening, Other)
  Sender: FDA-Public Use
  Company Number: None

PATIENT
  Age: 7 Month
  Sex: Female
  Weight: 71.67 kg

DRUGS (2)
  1. CYMBALTA [Suspect]
     Indication: BACK PAIN
     Route: 048
     Dates: start: 20120914, end: 20130804
  2. CYMBALTA [Suspect]
     Indication: MAJOR DEPRESSION
     Route: 048
     Dates: start: 20120914, end: 20130804

REACTIONS (12)
  - Headache [None]
  - Ear discomfort [None]
  - Hallucinations, mixed [None]
  - Mania [None]
  - Vomiting [None]
  - Paraesthesia [None]
  - Musculoskeletal chest pain [None]
  - Chest pain [None]
  - Dyspnoea [None]
  - Vertigo [None]
  - Dizziness [None]
  - Feeling abnormal [None]
